FAERS Safety Report 18556519 (Version 1)
Quarter: 2020Q4

REPORT INFORMATION
  Report Type: Spontaneous
  Country: AT (occurrence: AT)
  Receive Date: 20201128
  Receipt Date: 20201128
  Transmission Date: 20210114
  Serious: Yes (Other)
  Sender: FDA-Public Use
  Company Number: NVSC2020AT313461

PATIENT
  Age: 16 Month
  Sex: Female

DRUGS (1)
  1. ZOLGENSMA [Suspect]
     Active Substance: ONASEMNOGENE ABEPARVOVEC-XIOI
     Indication: SPINAL MUSCULAR ATROPHY
     Dosage: 1 UNK, ONCE/SINGLE
     Route: 065
     Dates: start: 20200915

REACTIONS (2)
  - Pyrexia [Recovering/Resolving]
  - Immunodeficiency [Recovering/Resolving]
